FAERS Safety Report 17586776 (Version 1)
Quarter: 2020Q1

REPORT INFORMATION
  Report Type: Report from Study
  Country: US (occurrence: US)
  Receive Date: 20200326
  Receipt Date: 20200326
  Transmission Date: 20200409
  Serious: Yes (Other)
  Sender: FDA-Public Use
  Company Number: US-GILEAD-2020-0451297

PATIENT
  Age: 73 Year
  Sex: Female

DRUGS (1)
  1. IDELALISIB [Suspect]
     Active Substance: IDELALISIB
     Indication: CHRONIC LYMPHOCYTIC LEUKAEMIA
     Dosage: 150 MG, BID
     Route: 048
     Dates: start: 20181003

REACTIONS (11)
  - Cholelithiasis [Unknown]
  - Pyrexia [Unknown]
  - Gallbladder polyp [Unknown]
  - Abdominal distension [Unknown]
  - Dehydration [Unknown]
  - Vomiting [Unknown]
  - White blood cell count increased [Unknown]
  - Eating disorder symptom [Unknown]
  - Hepatic enzyme increased [Unknown]
  - Antibiotic level above therapeutic [Unknown]
  - Infection [Unknown]

NARRATIVE: CASE EVENT DATE: 201909
